FAERS Safety Report 4466152-2 (Version None)
Quarter: 2004Q4

REPORT INFORMATION
  Report Type: 
  Country: None (occurrence: None)
  Receive Date: 20041004
  Receipt Date: 20040924
  Transmission Date: 20050328
  Serious: No
  Sender: FDA-Public Use
  Company Number: 2004CG01827

PATIENT
  Age: 54 Year
  Sex: Male
  Weight: 95 kg

DRUGS (9)
  1. CRESTOR [Suspect]
     Indication: HYPERCHOLESTEROLAEMIA
     Dosage: 20 MG QD PO
     Route: 048
     Dates: start: 20040409, end: 20040504
  2. CRESTOR [Suspect]
     Indication: HYPERCHOLESTEROLAEMIA
     Dosage: 10 MG QD PO
     Route: 048
     Dates: start: 20040521, end: 20040523
  3. HYTACAND [Concomitant]
  4. PREVISCAN [Concomitant]
  5. SOTALEX [Concomitant]
  6. FLEICAINE [Concomitant]
  7. DIFFU K [Concomitant]
  8. ZOXAN [Concomitant]
  9. TADENAN [Concomitant]

REACTIONS (3)
  - CONJUNCTIVITIS [None]
  - DRUG INEFFECTIVE [None]
  - SCLERITIS [None]
